FAERS Safety Report 10395869 (Version 2)
Quarter: 2014Q1

REPORT INFORMATION
  Report Type: Spontaneous
  Country: US (occurrence: None)
  Receive Date: 20130524
  Receipt Date: 20130724
  Transmission Date: 20141002
  Serious: No
  Sender: FDA-Public Use
  Company Number: PHEH2012US020930

PATIENT
  Age: 52 Year
  Sex: Female

DRUGS (2)
  1. GILENYA [Suspect]
     Indication: MULTIPLE SCLEROSIS
     Route: 048
     Dates: start: 2011
  2. SIMVASTATIN [Suspect]
     Indication: BLOOD CHOLESTEROL INCREASED

REACTIONS (2)
  - Blood cholesterol increased [None]
  - Hepatic enzyme increased [None]
